FAERS Safety Report 5385798-0 (Version None)
Quarter: 2007Q3

REPORT INFORMATION
  Report Type: 
  Country: None (occurrence: None)
  Receive Date: 20070710
  Receipt Date: 20061101
  Transmission Date: 20080115
  Serious: Yes (Other)
  Sender: FDA-Public Use
  Company Number: US-2006-031311

PATIENT
  Age: 42 Year
  Sex: Female
  Weight: 52 kg

DRUGS (1)
  1. YASMIN [Suspect]
     Indication: CONTRACEPTION
     Dosage: 1 TAB(S), 1X/DAY, ORAL
     Route: 048
     Dates: start: 20010101

REACTIONS (6)
  - ABDOMINAL DISTENSION [None]
  - BREAST ENLARGEMENT [None]
  - BREAST TENDERNESS [None]
  - CHOLECYSTECTOMY [None]
  - MOOD ALTERED [None]
  - WEIGHT INCREASED [None]
